FAERS Safety Report 16406630 (Version 1)
Quarter: 2019Q2

REPORT INFORMATION
  Report Type: Spontaneous
  Country: US (occurrence: US)
  Receive Date: 20190607
  Receipt Date: 20190607
  Transmission Date: 20190711
  Serious: No
  Sender: FDA-Public Use
  Company Number: US-BRECKENRIDGE PHARMACEUTICAL, INC.-2067954

PATIENT
  Age: 46 Year
  Sex: Male
  Weight: 97.73 kg

DRUGS (2)
  1. PRILOSEC [Concomitant]
     Active Substance: OMEPRAZOLE MAGNESIUM
  2. DULOXETINE. [Suspect]
     Active Substance: DULOXETINE
     Indication: DEPRESSION
     Route: 048

REACTIONS (5)
  - Drug ineffective [None]
  - Paraesthesia [None]
  - Palpitations [None]
  - Abdominal distension [None]
  - Blood pressure increased [None]
